FAERS Safety Report 8252717-9 (Version None)
Quarter: 2012Q2

REPORT INFORMATION
  Report Type: 
  Country: None (occurrence: None)
  Receive Date: 20120402
  Receipt Date: 20111128
  Transmission Date: 20120825
  Serious: No
  Sender: FDA-Public Use
  Company Number: US-ABBOTT-11P-163-0878942-00

PATIENT
  Sex: Male

DRUGS (14)
  1. COGARD [Concomitant]
     Indication: PRODUCT USED FOR UNKNOWN INDICATION
     Route: 048
  2. ALPHAGAN [Concomitant]
     Indication: GLAUCOMA
     Route: 047
  3. TRAVATAN Z [Concomitant]
     Indication: INTRAOCULAR PRESSURE INCREASED
  4. HUMULIN 70/30 [Concomitant]
     Indication: PRODUCT USED FOR UNKNOWN INDICATION
     Dosage: TAKES 55 UNITS NORMALLY, BUT SOMETIMES TAKES 6 EXTRA UNITS.
  5. HYDROCHLOROTHIAZIDE [Suspect]
     Indication: HYPERTENSION
     Route: 048
  6. DILAUDID [Concomitant]
     Indication: NEUROPATHY PERIPHERAL
     Route: 048
  7. METHADONE HCL [Concomitant]
     Route: 048
  8. CLONAZEPAM [Concomitant]
     Indication: PRODUCT USED FOR UNKNOWN INDICATION
     Route: 048
  9. ANDROGEL [Suspect]
     Indication: BLOOD TESTOSTERONE DECREASED
     Route: 061
  10. ALPHAGAN [Concomitant]
     Indication: INTRAOCULAR PRESSURE INCREASED
  11. MULTIVITAMIN [Concomitant]
     Indication: PRODUCT USED FOR UNKNOWN INDICATION
     Route: 048
  12. ASPIRIN [Suspect]
     Indication: PRODUCT USED FOR UNKNOWN INDICATION
     Route: 048
  13. TRAVATAN Z [Concomitant]
     Indication: GLAUCOMA
     Route: 047
  14. METHADONE HCL [Concomitant]
     Indication: PAIN MANAGEMENT
     Dosage: TAKES 20 TO 30 MILLIGRAMS DEPENDING ON PAIN.

REACTIONS (2)
  - SKIN DISCOLOURATION [None]
  - PLATELET COUNT DECREASED [None]
